FAERS Safety Report 8336484-6 (Version None)
Quarter: 2012Q2

REPORT INFORMATION
  Report Type: 
  Country: None (occurrence: None)
  Receive Date: 20120504
  Receipt Date: 20120425
  Transmission Date: 20120825
  Serious: Yes (Other)
  Sender: FDA-Public Use
  Company Number: US-VERTEX PHARMACEUTICALS INC.-AE-2012-006078

PATIENT
  Sex: Male

DRUGS (4)
  1. RIBAVIRIN [Concomitant]
     Dates: start: 20120316
  2. PEGASYS [Concomitant]
     Indication: HEPATITIS C
     Route: 058
     Dates: start: 20120106
  3. INCIVEK [Suspect]
     Indication: HEPATITIS C
     Route: 048
     Dates: start: 20120106, end: 20120330
  4. RIBAVIRIN [Concomitant]
     Indication: HEPATITIS C
     Route: 048
     Dates: start: 20120106, end: 20120301

REACTIONS (9)
  - GROIN PAIN [None]
  - LOCAL SWELLING [None]
  - DYSPNOEA [None]
  - EXCORIATION [None]
  - FACIAL BONES FRACTURE [None]
  - CONCUSSION [None]
  - LOSS OF CONSCIOUSNESS [None]
  - ANAEMIA [None]
  - FATIGUE [None]
